FAERS Safety Report 19004845 (Version 5)
Quarter: 2022Q2

REPORT INFORMATION
  Report Type: Report from Study
  Country: AU (occurrence: None)
  Receive Date: 20210312
  Receipt Date: 20220414
  Transmission Date: 20220720
  Serious: Yes (Other)
  Sender: FDA-Public Use
  Company Number: AU-ROCHE-2778938

PATIENT
  Age: 62 Year
  Sex: Female

DRUGS (27)
  1. OBINUTUZUMAB [Suspect]
     Active Substance: OBINUTUZUMAB
     Indication: Follicular lymphoma
     Dosage: MOST RECENT DOSE: 31/DEC/2020?1000 MG?A FLAT DOSE OF 1000MG IV WILL BE GIVEN EVERY CYCLE DURING INDU
     Route: 042
     Dates: start: 20191010
  2. VENETOCLAX [Suspect]
     Active Substance: VENETOCLAX
     Indication: Follicular lymphoma
     Dosage: DURING DOSE ESCALATION, THE DOSES FOR VENETOCLAX CAN BE 400MG DAILY DAYS 1-10, 800MG DAILY DAYS 1-10
     Route: 048
     Dates: start: 20191010
  3. LENALIDOMIDE [Suspect]
     Active Substance: LENALIDOMIDE
     Indication: Follicular lymphoma
     Dosage: DURING DOSE ESCALATION, THE DOSES OF LENALIDOMIDE CAN BE 15MG FOR DAYS 1-21 OR 20MG FOR DAYS 1-21. 6
     Route: 048
     Dates: start: 20191107
  4. DEXAMETHASONE [Concomitant]
     Active Substance: DEXAMETHASONE
     Indication: Premedication
     Route: 048
     Dates: start: 20191010, end: 20191107
  5. ACETAMINOPHEN [Concomitant]
     Active Substance: ACETAMINOPHEN
     Indication: Pain
     Route: 048
     Dates: start: 20190912, end: 20190912
  6. ACETAMINOPHEN [Concomitant]
     Active Substance: ACETAMINOPHEN
     Indication: Headache
     Route: 048
     Dates: start: 20191010
  7. ACETAMINOPHEN [Concomitant]
     Active Substance: ACETAMINOPHEN
     Indication: Premedication
     Dates: start: 20191122, end: 20191203
  8. ACETAMINOPHEN [Concomitant]
     Active Substance: ACETAMINOPHEN
     Indication: Conjunctivitis
  9. LORATADINE [Concomitant]
     Active Substance: LORATADINE
     Indication: Premedication
     Route: 048
     Dates: start: 20191010
  10. LORATADINE [Concomitant]
     Active Substance: LORATADINE
     Indication: Pruritus
     Route: 048
     Dates: start: 20191124
  11. LORATADINE [Concomitant]
     Active Substance: LORATADINE
     Indication: Conjunctivitis
     Dates: start: 20191124, end: 20191124
  12. METOCLOPRAMIDE [Concomitant]
     Active Substance: METOCLOPRAMIDE
     Indication: Nausea
     Route: 048
  13. MAGNESIUM [Concomitant]
     Active Substance: MAGNESIUM
     Indication: Plantar fasciitis
     Dosage: 300MG/G SMEAR BOTH FEET DAILY
     Route: 061
     Dates: start: 20191110
  14. CETYLPYRIDINIUM CHLORIDE [Concomitant]
     Active Substance: CETYLPYRIDINIUM CHLORIDE
     Indication: Dry mouth
     Dates: start: 20191216, end: 20200716
  15. CETYLPYRIDINIUM CHLORIDE [Concomitant]
     Active Substance: CETYLPYRIDINIUM CHLORIDE
     Indication: Stomatitis
     Dates: start: 20200208
  16. SYMBICORT [Concomitant]
     Active Substance: BUDESONIDE\FORMOTEROL FUMARATE DIHYDRATE
     Indication: Cough
     Dosage: 200/6MCG 2 PUFFS
     Dates: start: 20200906
  17. MENTHOL [Concomitant]
     Active Substance: MENTHOL
     Dosage: 1-3 SPRAYS EACH NOSTRIL,
     Dates: start: 202001
  18. MENTHOL [Concomitant]
     Active Substance: MENTHOL
     Dosage: 1-3 SPRAYS EACH NOSTRIL,
     Dates: start: 202001
  19. EUCALYPTUS [Concomitant]
     Active Substance: EUCALYPTUS GLOBULUS POLLEN\EUCALYPTUS GUM
     Dosage: ESSENTIAL OIL,
     Route: 061
     Dates: start: 20200120, end: 202010
  20. EUCALYPTUS [Concomitant]
     Active Substance: EUCALYPTUS GLOBULUS POLLEN\EUCALYPTUS GUM
     Dosage: 1-3 SPRAYS EACH NOSTRIL
     Dates: start: 202001
  21. PROMETHAZINE [Concomitant]
     Active Substance: PROMETHAZINE HYDROCHLORIDE
     Indication: Pruritus
     Route: 048
     Dates: start: 20200916
  22. PANADOL [Concomitant]
     Active Substance: ACETAMINOPHEN
     Indication: Headache
     Route: 048
     Dates: start: 20201024
  23. LORATADINE\PSEUDOEPHEDRINE SULFATE [Concomitant]
     Active Substance: LORATADINE\PSEUDOEPHEDRINE SULFATE
     Dosage: 5 MG?120 MG
     Route: 048
     Dates: start: 20201028
  24. FEXOFENADINE [Concomitant]
     Active Substance: FEXOFENADINE HYDROCHLORIDE
     Indication: Seasonal allergy
     Dosage: 60 MG 120 MG
     Route: 048
     Dates: start: 20201031
  25. FLUCLOXACILINA [Concomitant]
     Indication: Infection
     Route: 048
     Dates: start: 20210125, end: 20210201
  26. FLUCLOXACILINA [Concomitant]
     Route: 048
     Dates: start: 20210203, end: 20210210
  27. FUCIDIN [Concomitant]
     Active Substance: FUSIDATE SODIUM
     Indication: Infection
     Route: 061
     Dates: start: 20210125, end: 20210204

REACTIONS (1)
  - Squamous cell carcinoma [Recovered/Resolved]

NARRATIVE: CASE EVENT DATE: 20210121
